FAERS Safety Report 5756347-X (Version None)
Quarter: 2008Q2

REPORT INFORMATION
  Report Type: 
  Country: None (occurrence: None)
  Receive Date: 20080528
  Receipt Date: 20080528
  Transmission Date: 20081010
  Serious: No
  Sender: FDA-Public Use
  Company Number: None

PATIENT
  Age: 70 Year
  Sex: Female
  Weight: 58.0604 kg

DRUGS (1)
  1. AVELOX [Suspect]
     Indication: SINUSITIS
     Dosage: 400 MG ONCE A DAY PO
     Route: 048
     Dates: start: 20080522, end: 20080527

REACTIONS (10)
  - CRYING [None]
  - DEPRESSION [None]
  - DIZZINESS [None]
  - DYSPHAGIA [None]
  - FEELING ABNORMAL [None]
  - HYPERHIDROSIS [None]
  - MUSCULAR WEAKNESS [None]
  - MYALGIA [None]
  - PALPITATIONS [None]
  - VERTIGO [None]
